FAERS Safety Report 8261292-4 (Version None)
Quarter: 2012Q2

REPORT INFORMATION
  Report Type: 
  Country: None (occurrence: None)
  Receive Date: 20120405
  Receipt Date: 20120402
  Transmission Date: 20120825
  Serious: Yes (Hospitalization, Other)
  Sender: FDA-Public Use
  Company Number: US-PFIZER INC-2009262101

PATIENT
  Sex: Male

DRUGS (4)
  1. OXYCODONE [Concomitant]
     Indication: NERVE INJURY
  2. ALPRAZOLAM [Concomitant]
     Dosage: UNK
     Dates: start: 20050929
  3. OXYCODONE [Concomitant]
     Indication: SPINAL FUSION SURGERY
     Dosage: 10/325 (UNKNOWN UNITS)
  4. CHANTIX [Suspect]
     Indication: SMOKING CESSATION THERAPY
     Dosage: 1 MG, UNK
     Route: 048
     Dates: start: 20080228, end: 20080327

REACTIONS (5)
  - ALCOHOL USE [None]
  - ABNORMAL DREAMS [None]
  - SUICIDE ATTEMPT [None]
  - INTENTIONAL OVERDOSE [None]
  - DEPRESSION [None]
